FAERS Safety Report 7084762-3 (Version None)
Quarter: 2010Q4

REPORT INFORMATION
  Report Type: 
  Country: None (occurrence: None)
  Receive Date: 20101104
  Receipt Date: 20101028
  Transmission Date: 20110411
  Serious: Yes (Hospitalization, Other)
  Sender: FDA-Public Use
  Company Number: FR-B.I. PHARMACEUTICALS,INC./RIDGEFIELD-2010-FF-00874FF

PATIENT
  Age: 75 Year
  Sex: Male

DRUGS (3)
  1. MOBIC [Suspect]
     Indication: ARTHRALGIA
     Dosage: 15 MG/1.5 ML
     Route: 030
     Dates: start: 20100917, end: 20100925
  2. MITOMYCIN [Suspect]
     Indication: BLADDER TRANSITIONAL CELL CARCINOMA
     Route: 043
     Dates: start: 20100923, end: 20100923
  3. CIFLOX [Suspect]
     Indication: URINARY TRACT DISORDER
     Route: 048
     Dates: start: 20100924, end: 20100924

REACTIONS (8)
  - HYPERTHERMIA [None]
  - KLEBSIELLA INFECTION [None]
  - OLIGURIA [None]
  - PNEUMONIA KLEBSIELLA [None]
  - RENAL FAILURE ACUTE [None]
  - SEPSIS [None]
  - STEVENS-JOHNSON SYNDROME [None]
  - URINARY TRACT DISORDER [None]
